FAERS Safety Report 20746949 (Version 1)
Quarter: 2022Q2

REPORT INFORMATION
  Report Type: Spontaneous
  Country: US (occurrence: US)
  Receive Date: 20220425
  Receipt Date: 20220425
  Transmission Date: 20220721
  Serious: No
  Sender: FDA-Public Use
  Company Number: US-BRISTOL-MYERS SQUIBB COMPANY-2022-021332

PATIENT
  Age: 61 Year
  Sex: Male
  Weight: 81.1 kg

DRUGS (1)
  1. REVLIMID [Suspect]
     Active Substance: LENALIDOMIDE
     Indication: Plasma cell myeloma
     Dosage: DOSE: 10 MILLIGRAM, FREQ: DAILY 21DON, 7D OFF
     Route: 048
     Dates: start: 20210315

REACTIONS (1)
  - Skin lesion [Unknown]
